FAERS Safety Report 5495016-0 (Version None)
Quarter: 2007Q4

REPORT INFORMATION
  Report Type: 
  Country: None (occurrence: None)
  Receive Date: 20071024
  Receipt Date: 20071010
  Transmission Date: 20080405
  Serious: Yes (Death, Hospitalization)
  Sender: FDA-Public Use
  Company Number: CA-SHR-CAN-2002-009756

PATIENT
  Age: 56 Year
  Sex: Male

DRUGS (3)
  1. BETASERON [Suspect]
     Indication: MULTIPLE SCLEROSIS
     Dosage: 8 MIU, EVERY 2D
     Route: 058
     Dates: start: 20000804, end: 20021002
  2. BACLOFEN [Concomitant]
  3. SYMMETREL [Concomitant]

REACTIONS (3)
  - CARDIAC FAILURE CONGESTIVE [None]
  - DYSPNOEA [None]
  - LOWER RESPIRATORY TRACT INFECTION [None]
